FAERS Safety Report 6177411-X (Version None)
Quarter: 2009Q2

REPORT INFORMATION
  Report Type: 
  Country: None (occurrence: None)
  Receive Date: 20090504
  Receipt Date: 20090430
  Transmission Date: 20091009
  Serious: Yes (Other)
  Sender: FDA-Public Use
  Company Number: US-BAYER-200916891NA

PATIENT
  Sex: Female

DRUGS (1)
  1. MIRENA [Suspect]
     Indication: DRUG USE FOR UNKNOWN INDICATION
     Route: 015

REACTIONS (28)
  - ALOPECIA [None]
  - ANXIETY [None]
  - APATHY [None]
  - ASTHENIA [None]
  - BACK PAIN [None]
  - BLINDNESS TRANSIENT [None]
  - COUGH [None]
  - DISTURBANCE IN ATTENTION [None]
  - DIZZINESS [None]
  - FATIGUE [None]
  - FOREIGN BODY SENSATION IN EYES [None]
  - HEADACHE [None]
  - HYPOAESTHESIA [None]
  - IRRITABILITY [None]
  - LOSS OF LIBIDO [None]
  - MOVEMENT DISORDER [None]
  - NASAL CONGESTION [None]
  - NERVOUSNESS [None]
  - NIGHT BLINDNESS [None]
  - PALPITATIONS [None]
  - PHOTOPHOBIA [None]
  - POLLAKIURIA [None]
  - SPEECH DISORDER [None]
  - SWOLLEN TONGUE [None]
  - TEMPERATURE INTOLERANCE [None]
  - TREMOR [None]
  - VISION BLURRED [None]
  - WEIGHT DECREASED [None]
